FAERS Safety Report 15705398 (Version 1)
Quarter: 2018Q4

REPORT INFORMATION
  Report Type: Spontaneous
  Country: US (occurrence: US)
  Receive Date: 20181127
  Receipt Date: 20181127
  Transmission Date: 20190205
  Serious: No
  Sender: FDA-Public Use
  Company Number: None

PATIENT
  Age: 67 Year
  Sex: Male
  Weight: 143 kg

DRUGS (2)
  1. LEVOFLOXACIN. [Suspect]
     Active Substance: LEVOFLOXACIN
     Dosage: ?          OTHER FREQUENCY:Q24HR;?
     Route: 048
  2. LEVOFLOXACIN. [Suspect]
     Active Substance: LEVOFLOXACIN
     Indication: PNEUMONIA
     Dosage: ?          OTHER FREQUENCY:Q24HR;?
     Route: 042
     Dates: end: 20181108

REACTIONS (3)
  - Hypersensitivity vasculitis [None]
  - Petechiae [None]
  - Autoimmune disorder [None]

NARRATIVE: CASE EVENT DATE: 20181109
